FAERS Safety Report 20126689 (Version 1)
Quarter: 2021Q4

REPORT INFORMATION
  Report Type: Spontaneous
  Country: US (occurrence: US)
  Receive Date: 20211129
  Receipt Date: 20211129
  Transmission Date: 20220303
  Serious: No
  Sender: FDA-Public Use
  Company Number: US-Ipsen Biopharmaceuticals, Inc.-2021-29316

PATIENT
  Age: 34 Year
  Sex: Female

DRUGS (6)
  1. DYSPORT [Suspect]
     Active Substance: ABOBOTULINUMTOXINA
     Indication: Skin wrinkling
     Dosage: 36 IU: GLABELLAR:13 IU; FOREHEAD: 8 IU; CROWS FEET: 14 IU; EYEBROW: 1 IU
     Route: 065
     Dates: start: 20211017, end: 20211017
  2. DYSPORT [Suspect]
     Active Substance: ABOBOTULINUMTOXINA
     Indication: Skin wrinkling
  3. DYSPORT [Suspect]
     Active Substance: ABOBOTULINUMTOXINA
     Indication: Skin wrinkling
  4. DYSPORT [Suspect]
     Active Substance: ABOBOTULINUMTOXINA
     Indication: Skin wrinkling
  5. DYSPORT [Suspect]
     Active Substance: ABOBOTULINUMTOXINA
     Indication: Off label use
  6. DIAZEPAM [Concomitant]
     Active Substance: DIAZEPAM
     Dosage: DOSE NOT REPORTED
     Route: 065

REACTIONS (2)
  - Therapeutic response shortened [Unknown]
  - Off label use [Unknown]

NARRATIVE: CASE EVENT DATE: 20211017
